FAERS Safety Report 25722980 (Version 2)
Quarter: 2025Q3

REPORT INFORMATION
  Report Type: Spontaneous
  Country: TR (occurrence: TR)
  Receive Date: 20250825
  Receipt Date: 20250829
  Transmission Date: 20251021
  Serious: Yes (Life-Threatening)
  Sender: ELI LILLY AND COMPANY
  Company Number: TR-ELI_LILLY_AND_COMPANY-TR202504011002

PATIENT
  Age: 61 Year
  Sex: Male

DRUGS (16)
  1. HUMALOG [Suspect]
     Active Substance: INSULIN LISPRO
     Indication: Product used for unknown indication
     Route: 065
  2. HUMALOG [Suspect]
     Active Substance: INSULIN LISPRO
     Indication: Product used for unknown indication
     Route: 065
  3. HUMALOG [Suspect]
     Active Substance: INSULIN LISPRO
     Route: 065
  4. HUMALOG [Suspect]
     Active Substance: INSULIN LISPRO
     Route: 065
  5. HUMALOG [Suspect]
     Active Substance: INSULIN LISPRO
     Route: 065
  6. HUMALOG [Suspect]
     Active Substance: INSULIN LISPRO
     Route: 065
  7. HUMALOG [Suspect]
     Active Substance: INSULIN LISPRO
     Route: 065
  8. HUMALOG [Suspect]
     Active Substance: INSULIN LISPRO
     Route: 065
  9. HUMALOG [Suspect]
     Active Substance: INSULIN LISPRO
     Route: 065
  10. HUMALOG [Suspect]
     Active Substance: INSULIN LISPRO
     Route: 065
  11. HUMALOG [Suspect]
     Active Substance: INSULIN LISPRO
     Route: 065
  12. HUMALOG [Suspect]
     Active Substance: INSULIN LISPRO
     Route: 065
  13. HUMALOG [Suspect]
     Active Substance: INSULIN LISPRO
     Route: 065
  14. HUMALOG [Suspect]
     Active Substance: INSULIN LISPRO
     Route: 065
  15. HUMALOG [Suspect]
     Active Substance: INSULIN LISPRO
     Route: 065
  16. HUMALOG [Suspect]
     Active Substance: INSULIN LISPRO
     Route: 065

REACTIONS (5)
  - Blood glucose increased [Recovered/Resolved]
  - Blood glucose fluctuation [Unknown]
  - General physical health deterioration [Unknown]
  - Diabetic eye disease [Unknown]
  - Product dose omission issue [Unknown]

NARRATIVE: CASE EVENT DATE: 20250811
